FAERS Safety Report 8929857 (Version 1)
Quarter: 2012Q4

REPORT INFORMATION
  Report Type: 
  Country: US (occurrence: US)
  Receive Date: 20121128
  Receipt Date: 20121128
  Transmission Date: 20130627
  Serious: Yes (Other)
  Sender: FDA-Public Use
  Company Number: US-SHIRE-ALL1-2012-05662

PATIENT
  Age: 53 None
  Sex: Female
  Weight: 55.78 kg

DRUGS (8)
  1. ADDERALL XR [Suspect]
     Indication: PRODUCT USED FOR UNKNOWN INDICATION
     Dosage: UNK, Unknown
     Route: 048
  2. SYNTHROID [Suspect]
     Indication: HYPOTHYROIDISM
     Dosage: 100 ?g, 1x/day:qd
     Route: 065
  3. PREMARIN [Suspect]
     Indication: OESTROGEN REPLACEMENT THERAPY
     Dosage: 1.25 mg, 1x/day:qd
     Route: 048
  4. PREMARIN [Suspect]
     Indication: ARTIFICIAL MENOPAUSE
     Dosage: 0.625 mg, 1x/day:qd
     Route: 048
     Dates: start: 1983
  5. ATIVAN [Concomitant]
     Indication: PRODUCT USED FOR UNKNOWN INDICATION
     Dosage: UNK, Unknown
     Route: 065
  6. CLONOPIN [Concomitant]
     Indication: PRODUCT USED FOR UNKNOWN INDICATION
     Dosage: UNK, Unknown
     Route: 065
  7. WELLBUTRIN XL [Concomitant]
     Indication: PRODUCT USED FOR UNKNOWN INDICATION
     Dosage: UNK, Unknown
     Route: 065
  8. PROGESTERONE [Concomitant]
     Indication: PRODUCT USED FOR UNKNOWN INDICATION
     Dosage: UNK, Unknown
     Route: 065

REACTIONS (39)
  - Psychotic disorder [Unknown]
  - Violence-related symptom [Unknown]
  - Hot flush [Unknown]
  - Dehydration [Unknown]
  - Disturbance in attention [Recovered/Resolved]
  - Oral mucosal discolouration [Unknown]
  - Tongue disorder [Unknown]
  - Visual impairment [Unknown]
  - Pain in extremity [Unknown]
  - Aphasia [Unknown]
  - Vulvovaginal dryness [Unknown]
  - Vulvovaginal discomfort [Recovered/Resolved]
  - Hair texture abnormal [Unknown]
  - Muscle spasms [Unknown]
  - Cold sweat [Unknown]
  - Dry skin [Recovered/Resolved]
  - Arthropathy [Unknown]
  - Sleep disorder [Unknown]
  - Breast atrophy [Unknown]
  - Mood swings [Unknown]
  - Memory impairment [Unknown]
  - Neurological symptom [Unknown]
  - Personality change [Unknown]
  - Contusion [Not Recovered/Not Resolved]
  - Abdominal distension [Unknown]
  - Throat tightness [Unknown]
  - Urinary incontinence [Unknown]
  - Sinus disorder [Unknown]
  - Unevaluable event [Not Recovered/Not Resolved]
  - Chest pain [Unknown]
  - Dyspepsia [Unknown]
  - Anger [Unknown]
  - Rash [Unknown]
  - Weight decreased [Unknown]
  - Alopecia [Unknown]
  - Nausea [Unknown]
  - Diarrhoea [Not Recovered/Not Resolved]
  - Fatigue [Unknown]
  - Hyperhidrosis [Unknown]
